FAERS Safety Report 7035877-7 (Version None)
Quarter: 2010Q4

REPORT INFORMATION
  Report Type: 
  Country: None (occurrence: None)
  Receive Date: 20101007
  Receipt Date: 20101007
  Transmission Date: 20110411
  Serious: Yes (Life-Threatening)
  Sender: FDA-Public Use
  Company Number: None

PATIENT
  Sex: Female
  Weight: 47.5 kg

DRUGS (2)
  1. EPIPEN [Suspect]
     Indication: ANAPHYLACTIC REACTION
     Dosage: 0.3 MG Q2H X 2 DOSES IM
     Route: 030
     Dates: start: 20100918, end: 20100918
  2. EPIPEN [Suspect]
     Indication: HYPERSENSITIVITY
     Dosage: 0.3 MG Q2H X 2 DOSES IM
     Route: 030
     Dates: start: 20100918, end: 20100918

REACTIONS (1)
  - DEVICE INEFFECTIVE [None]
